FAERS Safety Report 7390158-7 (Version None)
Quarter: 2011Q1

REPORT INFORMATION
  Report Type: 
  Country: None (occurrence: None)
  Receive Date: 20110325
  Receipt Date: 20110317
  Transmission Date: 20110831
  Serious: Yes (Other)
  Sender: FDA-Public Use
  Company Number: 2011SP001918

PATIENT
  Age: 35 Year
  Sex: Female
  Weight: 57.6 kg

DRUGS (5)
  1. REMERON [Suspect]
     Indication: DEPRESSION
     Dosage: 15 MG; QD; PO
     Route: 048
     Dates: start: 20100921, end: 20101104
  2. PAXIL [Concomitant]
  3. DEPAKENE [Concomitant]
  4. MEILAX [Concomitant]
  5. OVULANZE [Concomitant]

REACTIONS (4)
  - STRESS [None]
  - INCREASED APPETITE [None]
  - WATER INTOXICATION [None]
  - OEDEMA [None]
